FAERS Safety Report 18859676 (Version 1)
Quarter: 2021Q1

REPORT INFORMATION
  Report Type: Spontaneous
  Country: US (occurrence: US)
  Receive Date: 20210208
  Receipt Date: 20210208
  Transmission Date: 20210420
  Serious: No
  Sender: FDA-Public Use
  Company Number: None

PATIENT
  Age: 51 Year
  Sex: Female
  Weight: 72 kg

DRUGS (6)
  1. DAILY MULTIVITAMIN [Concomitant]
     Active Substance: VITAMINS
  2. AIMOVIG [Suspect]
     Active Substance: ERENUMAB-AOOE
     Indication: MIGRAINE
     Dosage: ?          QUANTITY:1 INJECTION(S);OTHER FREQUENCY:MONTHLY;?
     Route: 058
  3. MIGRAINES ABORTIVES [Concomitant]
  4. FIBER SUPPLEMENTS [Concomitant]
  5. COLLAGEN [Concomitant]
     Active Substance: COLLAGEN
  6. BIRTH CONTROL [Concomitant]
     Active Substance: UNSPECIFIED INGREDIENT

REACTIONS (3)
  - Constipation [None]
  - Weight increased [None]
  - Abdominal distension [None]

NARRATIVE: CASE EVENT DATE: 20210201
